FAERS Safety Report 15777168 (Version 1)
Quarter: 2018Q4

REPORT INFORMATION
  Report Type: Spontaneous
  Country: TW (occurrence: TW)
  Receive Date: 20181231
  Receipt Date: 20181231
  Transmission Date: 20190205
  Serious: Yes (Other)
  Sender: FDA-Public Use
  Company Number: TW-HERITAGE PHARMACEUTICALS-2018HTG00525

PATIENT
  Age: 31 Year
  Sex: Female

DRUGS (5)
  1. CLOTIAPINE [Suspect]
     Active Substance: CLOTHIAPINE
     Indication: MANIA
     Dosage: 120 MG, 2X/DAY
     Route: 065
  2. CLOTIAPINE [Suspect]
     Active Substance: CLOTHIAPINE
     Dosage: 160 MG, 1X/DAY
     Route: 065
  3. LITHIUM CARBONATE. [Suspect]
     Active Substance: LITHIUM CARBONATE
     Indication: MANIA
     Dosage: 600 MG, 1X/DAY
     Route: 065
  4. LITHIUM CARBONATE. [Suspect]
     Active Substance: LITHIUM CARBONATE
     Dosage: 900 MG, 2X/DAY
     Route: 065
  5. QUETIAPINE. [Concomitant]
     Active Substance: QUETIAPINE
     Indication: MANIA
     Dosage: 600 MG, 1X/DAY
     Route: 065

REACTIONS (2)
  - Drug interaction [Recovered/Resolved]
  - Pleurothotonus [Recovered/Resolved]
